FAERS Safety Report 13073378 (Version 2)
Quarter: 2017Q1

REPORT INFORMATION
  Report Type: Spontaneous
  Country: IT (occurrence: IT)
  Receive Date: 20161229
  Receipt Date: 20170104
  Transmission Date: 20170428
  Serious: Yes (Hospitalization)
  Sender: FDA-Public Use
  Company Number: IT-BAYER-2016-243063

PATIENT
  Age: 51 Year
  Sex: Male

DRUGS (2)
  1. AMOXICILLIN W/CLAVULANIC ACID [Suspect]
     Active Substance: AMOXICILLIN\CLAVULANIC ACID
     Indication: DRUG ABUSE
     Dosage: 5 DF, ONCE
     Route: 048
     Dates: start: 20140808, end: 20140808
  2. CIPROFLOXACIN. [Suspect]
     Active Substance: CIPROFLOXACIN
     Indication: DRUG ABUSE
     Dosage: 5 DF, ONCE
     Route: 048
     Dates: start: 20140808, end: 20140808

REACTIONS (3)
  - Retching [Recovering/Resolving]
  - Drug abuse [Recovering/Resolving]
  - Haematemesis [Recovering/Resolving]

NARRATIVE: CASE EVENT DATE: 20140808
